FAERS Safety Report 22521177 (Version 1)
Quarter: 2023Q2

REPORT INFORMATION
  Report Type: Other
  Country: US (occurrence: None)
  Receive Date: 20230605
  Receipt Date: 20230605
  Transmission Date: 20230721
  Serious: Yes (Other)
  Sender: FDA-Public Use
  Company Number: US-ROCHE-3358510

PATIENT

DRUGS (4)
  1. BEVACIZUMAB [Suspect]
     Active Substance: BEVACIZUMAB
     Indication: Triple negative breast cancer
     Dosage: 10-15 MG/KG
     Route: 042
  2. DOXORUBICIN HYDROCHLORIDE [Suspect]
     Active Substance: DOXORUBICIN HYDROCHLORIDE
     Indication: Triple negative breast cancer
     Route: 042
  3. TEMSIROLIMUS [Suspect]
     Active Substance: TEMSIROLIMUS
     Indication: Triple negative breast cancer
     Route: 042
  4. EVEROLIMUS [Suspect]
     Active Substance: EVEROLIMUS
     Indication: Triple negative breast cancer
     Route: 048

REACTIONS (20)
  - Neutrophil count decreased [Unknown]
  - Anaemia [Unknown]
  - Stomatitis [Unknown]
  - Rash [Unknown]
  - Erythema multiforme [Unknown]
  - Portal hypertension [Unknown]
  - Fatigue [Unknown]
  - Headache [Unknown]
  - Decreased appetite [Unknown]
  - Anxiety [Unknown]
  - Blood creatinine increased [Unknown]
  - Blood cholesterol increased [Unknown]
  - Depression [Unknown]
  - Dyspnoea [Unknown]
  - Hyperglycaemia [Unknown]
  - Hypertriglyceridaemia [Unknown]
  - Insomnia [Unknown]
  - Onychomadesis [Unknown]
  - Nausea [Unknown]
  - Skin infection [Unknown]
